FAERS Safety Report 10184841 (Version 1)
Quarter: 2014Q2

REPORT INFORMATION
  Report Type: Spontaneous
  Country: US (occurrence: None)
  Receive Date: 20140520
  Receipt Date: 20140520
  Transmission Date: 20141212
  Serious: Yes (Hospitalization)
  Sender: FDA-Public Use
  Company Number: None

PATIENT
  Age: 23 Year
  Sex: Female

DRUGS (1)
  1. CEFTAZIDIME [Suspect]
     Indication: CYSTIC FIBROSIS
     Route: 042
     Dates: start: 20120629, end: 20120702

REACTIONS (3)
  - Paraesthesia [None]
  - Sneezing [None]
  - Swollen tongue [None]
